FAERS Safety Report 9227745 (Version 1)
Quarter: 2013Q2

REPORT INFORMATION
  Report Type: Spontaneous
  Country: US (occurrence: None)
  Receive Date: 20130411
  Receipt Date: 20130411
  Transmission Date: 20140414
  Serious: Yes (Hospitalization)
  Sender: FDA-Public Use
  Company Number: None

PATIENT
  Age: 60 Year
  Sex: Female

DRUGS (1)
  1. KOMBIGLYZE XR [Suspect]
     Indication: DIABETES MELLITUS
     Route: 048
     Dates: start: 20130405, end: 20130406

REACTIONS (7)
  - Chest discomfort [None]
  - Hyperhidrosis [None]
  - Dyspnoea [None]
  - Dizziness [None]
  - Heart rate increased [None]
  - Nausea [None]
  - Fibrin D dimer increased [None]
